FAERS Safety Report 8624401-0 (Version None)
Quarter: 2012Q3

REPORT INFORMATION
  Report Type: 
  Country: None (occurrence: None)
  Receive Date: 20120827
  Receipt Date: 20120820
  Transmission Date: 20120928
  Serious: Yes (Other)
  Sender: FDA-Public Use
  Company Number: PHHY2011JP81382

PATIENT
  Sex: Female

DRUGS (7)
  1. ASPARA K [Concomitant]
     Dosage: 600 MG, UNK
     Dates: start: 20100709
  2. LASIX [Suspect]
     Dosage: 20 MG, DAILY
     Route: 048
     Dates: start: 20110526
  3. ASPARA K [Concomitant]
     Dosage: 1800 MG, UNK
     Route: 048
  4. TASIGNA [Suspect]
     Indication: CHRONIC MYELOID LEUKAEMIA
     Dosage: 800 MG, DAILY
     Route: 048
     Dates: start: 20100709
  5. LANSOPRAZOLE [Concomitant]
     Dosage: 15 MG, UNK
     Dates: start: 20100916
  6. MUCOSTA [Concomitant]
     Dosage: 300 MG, UNK
     Route: 048
     Dates: start: 20100715
  7. LASIX [Suspect]
     Dosage: 40 MG, DAILY
     Route: 048
     Dates: start: 20100709, end: 20110525

REACTIONS (3)
  - CONCOMITANT DISEASE AGGRAVATED [None]
  - ANAEMIA [None]
  - HYPOKALAEMIA [None]
